FAERS Safety Report 11614836 (Version 1)
Quarter: 2015Q4

REPORT INFORMATION
  Report Type: Report from Study
  Country: US (occurrence: US)
  Receive Date: 20151009
  Receipt Date: 20151009
  Transmission Date: 20160304
  Serious: Yes (Other)
  Sender: FDA-Public Use
  Company Number: US-AMGEN-USASL2015103587

PATIENT
  Age: 68 Year
  Sex: Female

DRUGS (1)
  1. ENBREL [Suspect]
     Active Substance: ETANERCEPT
     Indication: PSORIATIC ARTHROPATHY
     Dosage: 50 MG, QWK
     Route: 065

REACTIONS (6)
  - Staphylococcal infection [Unknown]
  - Pneumonia [Unknown]
  - Small intestinal bacterial overgrowth [Unknown]
  - Pulmonary hypertension [Unknown]
  - Skin ulcer [Unknown]
  - Abdominal mass [Unknown]

NARRATIVE: CASE EVENT DATE: 2011
